FAERS Safety Report 6992642-4 (Version None)
Quarter: 2010Q3

REPORT INFORMATION
  Report Type: 
  Country: None (occurrence: None)
  Receive Date: 20100917
  Receipt Date: 20100909
  Transmission Date: 20110219
  Serious: Yes (Hospitalization)
  Sender: FDA-Public Use
  Company Number: KR-EISAI INC.-E3810-04082-SPO-KR

PATIENT
  Sex: Female

DRUGS (4)
  1. PARIET (RABEPRAZOLE) [Suspect]
     Indication: GASTROINTESTINAL DISORDER
     Dosage: UNKNOWN
     Route: 048
     Dates: start: 20100828, end: 20100831
  2. ALMAGEL [Concomitant]
     Indication: GASTROINTESTINAL DISORDER
     Dates: start: 20100828, end: 20100831
  3. BESZYME [Concomitant]
     Indication: GASTROINTESTINAL DISORDER
     Dates: start: 20100828, end: 20100831
  4. STABLON [Concomitant]
     Indication: GASTROINTESTINAL DISORDER
     Dates: start: 20100828, end: 20100831

REACTIONS (4)
  - DIZZINESS [None]
  - HYPOTONIA [None]
  - MEMORY IMPAIRMENT [None]
  - VISION BLURRED [None]
